FAERS Safety Report 10018658 (Version 1)
Quarter: 2014Q1

REPORT INFORMATION
  Report Type: Spontaneous
  Country: IN (occurrence: None)
  Receive Date: 20140312
  Receipt Date: 20140312
  Transmission Date: 20141002
  Serious: Yes (Life-Threatening, Hospitalization)
  Sender: FDA-Public Use
  Company Number: IMP_07500_2014

PATIENT
  Age: 28 Year
  Sex: Male

DRUGS (3)
  1. CHLOROQUINE [Suspect]
     Indication: PYREXIA
     Dosage: DF DEXTROSE (NOT SPECIFIED)
     Dates: start: 20110307
  2. INTRAVENOUS DEXTROSE [Suspect]
     Indication: DEHYDRATION
     Dosage: DF
  3. OTHER ANALGESICS AND ANTIPYRETICS [Concomitant]

REACTIONS (14)
  - Vomiting projectile [None]
  - Asthenia [None]
  - Lethargy [None]
  - Fall [None]
  - Weight bearing difficulty [None]
  - Metabolic alkalosis [None]
  - Electrocardiogram ST segment depression [None]
  - Hypokalaemia [None]
  - Guillain-Barre syndrome [None]
  - Areflexia [None]
  - Paralysis [None]
  - Quadriplegia [None]
  - Infrequent bowel movements [None]
  - Electrocardiogram U-wave abnormality [None]
